FAERS Safety Report 5964791-0 (Version None)
Quarter: 2008Q4

REPORT INFORMATION
  Report Type: 
  Country: None (occurrence: None)
  Receive Date: 20081125
  Receipt Date: 20080522
  Transmission Date: 20090506
  Serious: No
  Sender: FDA-Public Use
  Company Number: US-BAYER-200812061BCC

PATIENT
  Sex: Female

DRUGS (2)
  1. MIDOL [Suspect]
     Indication: DYSMENORRHOEA
  2. ASPIRIN [Suspect]
     Indication: DYSMENORRHOEA

REACTIONS (1)
  - DRUG HYPERSENSITIVITY [None]
